FAERS Safety Report 5685443-0 (Version None)
Quarter: 2008Q1

REPORT INFORMATION
  Report Type: 
  Country: None (occurrence: None)
  Receive Date: 20080328
  Receipt Date: 20080320
  Transmission Date: 20080703
  Serious: Yes (Other)
  Sender: FDA-Public Use
  Company Number: GB-PFIZER INC-2008026146

PATIENT
  Sex: Male

DRUGS (2)
  1. LIPITOR [Suspect]
     Indication: DRUG USE FOR UNKNOWN INDICATION
     Route: 048
  2. STATINS [Concomitant]

REACTIONS (5)
  - BACK PAIN [None]
  - CARDIAC DISORDER [None]
  - FATIGUE [None]
  - FLATULENCE [None]
  - TRANSIENT ISCHAEMIC ATTACK [None]
